FAERS Safety Report 12009374 (Version 2)
Quarter: 2016Q1

REPORT INFORMATION
  Report Type: Spontaneous
  Country: HU (occurrence: HU)
  Receive Date: 20160205
  Receipt Date: 20160302
  Transmission Date: 20160526
  Serious: Yes (Other)
  Sender: FDA-Public Use
  Company Number: HU-PFIZER INC-2015435330

PATIENT
  Age: 53 Year
  Sex: Male

DRUGS (5)
  1. SUTENT [Suspect]
     Active Substance: SUNITINIB MALATE
     Dosage: 2ND CYCLE 25 MG, 1X/DAY
     Route: 048
     Dates: start: 20151208
  2. SUTENT [Suspect]
     Active Substance: SUNITINIB MALATE
     Dosage: 3RD CYCLE, 25 MG, 1X/DAY, ACCORDING TO THE 4/2 SCHEMA
     Route: 048
     Dates: start: 20160118
  3. SUTENT [Suspect]
     Active Substance: SUNITINIB MALATE
     Dosage: 2ND CYCLE 37.5 MG, 1X/DAY, ACCORDING TO 4/2 SCHEMA
     Route: 048
     Dates: start: 20151123
  4. CLEXANE [Concomitant]
     Active Substance: ENOXAPARIN SODIUM
     Dosage: UNK
     Dates: start: 201503
  5. SUTENT [Suspect]
     Active Substance: SUNITINIB MALATE
     Indication: METASTATIC RENAL CELL CARCINOMA
     Dosage: 1ST CYCLE, 50 MG, 1X/DAY
     Route: 048
     Dates: start: 20151014

REACTIONS (8)
  - Abasia [Not Recovered/Not Resolved]
  - Hypoaesthesia [Recovered/Resolved]
  - Dizziness [Recovered/Resolved]
  - Diarrhoea [Unknown]
  - Muscular weakness [Not Recovered/Not Resolved]
  - Blood pressure systolic increased [Unknown]
  - Nausea [Recovered/Resolved]
  - Dry mouth [Unknown]

NARRATIVE: CASE EVENT DATE: 20151127
